FAERS Safety Report 25814138 (Version 3)
Quarter: 2025Q4

REPORT INFORMATION
  Report Type: Report from Study
  Country: US (occurrence: US)
  Receive Date: 20250917
  Receipt Date: 20251023
  Transmission Date: 20260118
  Serious: No
  Sender: MALLINCKRODT
  Company Number: US-MALLINCKRODT-MNK202505596

PATIENT
  Age: 50 Year
  Sex: Female
  Weight: 171 kg

DRUGS (1)
  1. CORTICOTROPIN [Suspect]
     Active Substance: CORTICOTROPIN
     Indication: Systemic lupus erythematosus
     Dosage: 80 UNITS
     Route: 058
     Dates: start: 20250828, end: 2025

REACTIONS (3)
  - Cardiac disorder [Unknown]
  - Injection site bruising [Unknown]
  - Headache [Unknown]

NARRATIVE: CASE EVENT DATE: 20250101
